FAERS Safety Report 12115055 (Version 2)
Quarter: 2016Q3

REPORT INFORMATION
  Report Type: Report from Study
  Country: IS (occurrence: IS)
  Receive Date: 20160225
  Receipt Date: 20160707
  Transmission Date: 20161109
  Serious: Yes (Hospitalization, Other)
  Sender: FDA-Public Use
  Company Number: PHHY2016IS024266

PATIENT
  Age: 52 Year
  Sex: Male

DRUGS (1)
  1. DABRAFENIB [Suspect]
     Active Substance: DABRAFENIB
     Indication: METASTATIC MALIGNANT MELANOMA
     Dosage: UNK
     Route: 048
     Dates: start: 20160113

REACTIONS (21)
  - Malaise [Unknown]
  - Hypotension [Unknown]
  - Gallbladder oedema [Unknown]
  - Liver function test increased [Unknown]
  - Metastases to liver [Unknown]
  - Systemic inflammatory response syndrome [Recovered/Resolved]
  - Metastases to pancreas [Unknown]
  - Diarrhoea [Unknown]
  - Cholecystitis [Recovered/Resolved]
  - Pyrexia [Recovered/Resolved]
  - Pericardial effusion [Unknown]
  - Atelectasis [Unknown]
  - Abdominal pain upper [Unknown]
  - Metastases to abdominal wall [Unknown]
  - Intra-abdominal fluid collection [Unknown]
  - Nausea [Unknown]
  - Pleural effusion [Unknown]
  - Tympanic membrane disorder [Unknown]
  - Biliary tract disorder [Unknown]
  - Bronchial wall thickening [Unknown]
  - Asthenia [Unknown]

NARRATIVE: CASE EVENT DATE: 20160129
